FAERS Safety Report 25570717 (Version 1)
Quarter: 2025Q3

REPORT INFORMATION
  Report Type: Spontaneous
  Country: US (occurrence: US)
  Receive Date: 20250717
  Receipt Date: 20250717
  Transmission Date: 20251021
  Serious: Yes (Death, Other)
  Sender: SPECTRUM
  Company Number: US-SPECTRUM PHARMACEUTICALS, INC.-US-2025AST000302

PATIENT
  Sex: Male

DRUGS (1)
  1. ROLVEDON [Suspect]
     Active Substance: EFLAPEGRASTIM-XNST
     Indication: Product used for unknown indication
     Route: 065
     Dates: start: 20250129

REACTIONS (1)
  - Malignant neoplasm progression [Fatal]

NARRATIVE: CASE EVENT DATE: 20250613
